FAERS Safety Report 4826307-1 (Version None)
Quarter: 2005Q4

REPORT INFORMATION
  Report Type: 
  Country: None (occurrence: None)
  Receive Date: 20051111
  Receipt Date: 20050803
  Transmission Date: 20060501
  Serious: Yes (Death)
  Sender: FDA-Public Use
  Company Number: 2005AP04235

PATIENT
  Age: 79 Year
  Sex: Male

DRUGS (4)
  1. MEROPEN [Suspect]
     Indication: PNEUMONIA
     Route: 041
     Dates: start: 20050525, end: 20050530
  2. GASTER [Suspect]
     Indication: GASTROINTESTINAL HAEMORRHAGE
     Route: 041
     Dates: start: 20050525, end: 20050531
  3. LASIX [Concomitant]
     Indication: CARDIAC FAILURE
     Route: 041
     Dates: start: 20050530, end: 20050531
  4. LASIX [Concomitant]
     Route: 041
     Dates: start: 20050601, end: 20050603

REACTIONS (6)
  - ASCITES [None]
  - HEPATIC ATROPHY [None]
  - HEPATIC FAILURE [None]
  - HEPATITIS FULMINANT [None]
  - HEPATOCELLULAR DAMAGE [None]
  - UPPER GASTROINTESTINAL HAEMORRHAGE [None]
